FAERS Safety Report 10628115 (Version 1)
Quarter: 2014Q4

REPORT INFORMATION
  Report Type: Spontaneous
  Country: US (occurrence: US)
  Receive Date: 20141205
  Receipt Date: 20141205
  Transmission Date: 20150529
  Serious: No
  Sender: FDA-Public Use
  Company Number: US-BRISTOL-MYERS SQUIBB COMPANY-21073671

PATIENT
  Age: 86 Year
  Sex: Female
  Weight: 62.58 kg

DRUGS (1)
  1. WARFARIN SODIUM. [Suspect]
     Active Substance: WARFARIN SODIUM
     Indication: HEART RATE IRREGULAR
     Dosage: 2.5MG FOR 5 DAYS AND THEN INCREASES THE DOSE FOR 2 MORE DAYS. TABLETS

REACTIONS (1)
  - International normalised ratio decreased [Recovered/Resolved]
